FAERS Safety Report 4305869-7 (Version None)
Quarter: 2004Q1

REPORT INFORMATION
  Report Type: 
  Country: None (occurrence: None)
  Receive Date: 20040225
  Receipt Date: 20040218
  Transmission Date: 20041129
  Serious: Yes (Life-Threatening)
  Sender: FDA-Public Use
  Company Number: 2004-113063-NL

PATIENT
  Age: 64 Year
  Sex: Female

DRUGS (9)
  1. MIRTAZAPINE [Suspect]
     Indication: ANXIETY
     Dosage: 30 MG QD ORAL
     Route: 048
     Dates: start: 20040123, end: 20040204
  2. SIMVASTATIN [Concomitant]
  3. QUINAPRIL HYDROCHLORIDE [Concomitant]
  4. AMLODIPINE BESYLATE [Concomitant]
  5. HYDROCHLOROTHIAZIDE [Concomitant]
  6. TRIMEBUTINE MALEATE [Concomitant]
  7. ACETAMINOPHEN [Concomitant]
  8. MULTI-VITAMINS [Concomitant]
  9. REVITONE [Concomitant]

REACTIONS (3)
  - ASTHENIA [None]
  - PALPITATIONS [None]
  - TREMOR [None]
